FAERS Safety Report 7038698-4 (Version None)
Quarter: 2010Q4

REPORT INFORMATION
  Report Type: 
  Country: None (occurrence: None)
  Receive Date: 20101012
  Receipt Date: 20101001
  Transmission Date: 20110411
  Serious: Yes (Life-Threatening, Disabling, Other)
  Sender: FDA-Public Use
  Company Number: US-ALLERGAN-1012700US

PATIENT
  Age: 71 Year
  Sex: Female

DRUGS (3)
  1. PRED FORTE [Suspect]
     Indication: POSTOPERATIVE CARE
     Dosage: 4 GTT, BID
     Route: 047
     Dates: start: 20081004, end: 20081028
  2. NASONEX [Concomitant]
     Indication: ASTHMA
     Dosage: UNK
  3. ASTELIN                            /00085801/ [Concomitant]
     Indication: ASTHMA

REACTIONS (8)
  - ASTHMA [None]
  - BLINDNESS UNILATERAL [None]
  - FOREIGN BODY SENSATION IN EYES [None]
  - INFLUENZA LIKE ILLNESS [None]
  - LUNG DISORDER [None]
  - OPTIC NERVE INJURY [None]
  - VISUAL ACUITY REDUCED [None]
  - VISUAL FIELD DEFECT [None]
